FAERS Safety Report 8377759-4 (Version None)
Quarter: 2012Q2

REPORT INFORMATION
  Report Type: 
  Country: None (occurrence: None)
  Receive Date: 20120521
  Receipt Date: 20120509
  Transmission Date: 20120825
  Serious: Yes (Other)
  Sender: FDA-Public Use
  Company Number: 2010MA002490

PATIENT
  Age: 65 Year
  Sex: Female
  Weight: 82.5547 kg

DRUGS (63)
  1. ACCUPRIL [Concomitant]
  2. ADVAIR DISKUS 100/50 [Concomitant]
  3. CARTIA XT [Concomitant]
  4. CIPROFLOXACNI [Concomitant]
  5. CLARITHROMYCIN [Concomitant]
  6. EELSTAT EYE DROPS [Concomitant]
  7. FEXOFENADINE [Concomitant]
  8. MIRTAZAPINE [Concomitant]
  9. PROTONIX [Concomitant]
  10. RESTASIS [Concomitant]
  11. UREA CREAM [Concomitant]
  12. ACEBUTOLOL [Concomitant]
  13. BENZONATATE [Concomitant]
  14. DURPHEN [Concomitant]
  15. KLONOPIN [Concomitant]
  16. NABUMETONE [Concomitant]
  17. PROVENTIL [Concomitant]
  18. RELAFEN [Concomitant]
  19. SEROQUEL [Concomitant]
  20. SINGULAIR [Concomitant]
  21. CHLORAZEPAM [Concomitant]
  22. DARVOCET-N 50 [Concomitant]
  23. EFFEXOR [Concomitant]
  24. LORTAB [Concomitant]
  25. LOZAL [Concomitant]
  26. OMEPRAZOLE [Concomitant]
  27. PREDNISONE [Concomitant]
  28. REMERON [Concomitant]
  29. SECTRAL [Concomitant]
  30. VESICARE [Concomitant]
  31. ZYRTEC [Concomitant]
  32. METOCLOPRAMIDE [Suspect]
     Indication: GASTROOESOPHAGEAL REFLUX DISEASE
     Dosage: 10 MG;1 TAB AC + HS;PO
     Route: 048
     Dates: start: 19950703, end: 20070409
  33. CLONAZEPAM [Concomitant]
  34. TRIAMTERENE W/HCTZ [Concomitant]
  35. VETUSS [Concomitant]
  36. BONIVA [Concomitant]
  37. CARISOPRODOL [Concomitant]
  38. GUAPHEN FORTE [Concomitant]
  39. HYDROCODONE BITARTRATE AND ACETAMINOPHEN [Concomitant]
  40. LEVAQUIN [Concomitant]
  41. SKELAXIN [Concomitant]
  42. AMITRIPTYLINE HCL [Concomitant]
  43. ANTIVERT [Concomitant]
  44. AZITHROMYCIN [Concomitant]
  45. BELLASPAS [Concomitant]
  46. ERYTHROMYCIN [Concomitant]
  47. PHENAZOPYRIDINE HCL TAB [Concomitant]
  48. RHINOCORT [Concomitant]
  49. SOMA [Concomitant]
  50. ALBUTEROL [Concomitant]
  51. CEFADROXIL [Concomitant]
  52. FIORICET [Concomitant]
  53. FLONASE [Concomitant]
  54. HYDROCHLOROTHIAZIDE [Concomitant]
  55. INDAPAMIDE [Concomitant]
  56. PREMARIN [Concomitant]
  57. ALPRAMAZOL [Concomitant]
  58. BENICAR [Concomitant]
  59. CARDIZEM [Concomitant]
  60. EPERBEL-S [Concomitant]
  61. LITHIUM CARBONATE [Concomitant]
  62. PSEUDO-GUAIFENESIN [Concomitant]
  63. DIOVAN [Concomitant]

REACTIONS (30)
  - EMOTIONAL DISORDER [None]
  - BACK INJURY [None]
  - PANIC DISORDER [None]
  - ECONOMIC PROBLEM [None]
  - HYPERTENSION [None]
  - ASTHMA [None]
  - INTERVERTEBRAL DISC PROTRUSION [None]
  - FEAR [None]
  - DRY MOUTH [None]
  - PSYCHOTIC DISORDER [None]
  - INCORRECT DRUG ADMINISTRATION DURATION [None]
  - SEASONAL ALLERGY [None]
  - MOOD SWINGS [None]
  - EXCESSIVE EYE BLINKING [None]
  - BLEPHAROSPASM [None]
  - EXTRAPYRAMIDAL DISORDER [None]
  - INSOMNIA [None]
  - BIPOLAR DISORDER [None]
  - DYSKINESIA [None]
  - NERVOUSNESS [None]
  - CATARACT OPERATION [None]
  - TREMOR [None]
  - PROTRUSION TONGUE [None]
  - AGORAPHOBIA [None]
  - ANXIETY [None]
  - TARDIVE DYSKINESIA [None]
  - AKATHISIA [None]
  - DEPRESSION [None]
  - ANGER [None]
  - IRRITABILITY [None]
